FAERS Safety Report 19470402 (Version 1)
Quarter: 2021Q2

REPORT INFORMATION
  Report Type: Spontaneous
  Country: JP (occurrence: JP)
  Receive Date: 20210629
  Receipt Date: 20210629
  Transmission Date: 20210717
  Serious: Yes (Hospitalization)
  Sender: FDA-Public Use
  Company Number: JP-TEVA-2021-JP-1927280

PATIENT
  Age: 35 Year
  Sex: Female

DRUGS (7)
  1. DAPTOMYCIN. [Suspect]
     Active Substance: DAPTOMYCIN
     Indication: ENDOCARDITIS
     Route: 042
  2. CEFTRIAXONE. [Suspect]
     Active Substance: CEFTRIAXONE
     Indication: ENDOCARDITIS
     Route: 042
  3. LEVOFLOXACIN. [Suspect]
     Active Substance: LEVOFLOXACIN
     Indication: CHRONIC SINUSITIS
     Route: 065
  4. AMPICILLIN/CLOXACILLIN [Suspect]
     Active Substance: AMPICILLIN\CLOXACILLIN
     Indication: ENDOCARDITIS
     Route: 042
  5. LEVOFLOXACIN. [Suspect]
     Active Substance: LEVOFLOXACIN
     Route: 042
  6. VANCOMYCIN [Suspect]
     Active Substance: VANCOMYCIN
     Indication: ENDOCARDITIS
     Route: 042
  7. AMOXICILLIN?CLAVULANATE [Suspect]
     Active Substance: AMOXICILLIN\CLAVULANIC ACID
     Indication: CHRONIC SINUSITIS
     Route: 065

REACTIONS (2)
  - Off label use [Unknown]
  - Acute kidney injury [Recovered/Resolved]
